FAERS Safety Report 22183444 (Version 2)
Quarter: 2023Q2

REPORT INFORMATION
  Report Type: Spontaneous
  Country: US (occurrence: US)
  Receive Date: 20230406
  Receipt Date: 20230425
  Transmission Date: 20230721
  Serious: No
  Sender: FDA-Public Use
  Company Number: US-APIL-2308273US

PATIENT
  Sex: Female

DRUGS (1)
  1. QULIPTA [Suspect]
     Active Substance: ATOGEPANT
     Indication: Rheumatoid arthritis
     Dates: start: 20211212

REACTIONS (2)
  - Illness [Recovering/Resolving]
  - Off label use [Unknown]
